FAERS Safety Report 21817573 (Version 2)
Quarter: 2023Q2

REPORT INFORMATION
  Report Type: Report from Study
  Country: IE (occurrence: IE)
  Receive Date: 20230104
  Receipt Date: 20230404
  Transmission Date: 20230721
  Serious: Yes (Hospitalization)
  Sender: FDA-Public Use
  Company Number: IE-AstraZeneca-2022A420831

PATIENT
  Age: 11 Month
  Sex: Male

DRUGS (6)
  1. SYNAGIS [Suspect]
     Active Substance: PALIVIZUMAB
     Indication: Heart disease congenital
     Dosage: ONCE 4 WEEKS
     Route: 030
     Dates: start: 20220104
  2. SYNAGIS [Suspect]
     Active Substance: PALIVIZUMAB
     Dosage: ONCE A 4 WEEKS
     Route: 030
     Dates: start: 20220203
  3. SYNAGIS [Suspect]
     Active Substance: PALIVIZUMAB
     Route: 030
     Dates: start: 20221101
  4. SYNAGIS [Suspect]
     Active Substance: PALIVIZUMAB
     Dosage: ONCE IN 4 WEEKS
     Route: 030
     Dates: start: 20221130
  5. SYNAGIS [Suspect]
     Active Substance: PALIVIZUMAB
     Dosage: ONCE IN 4 WEEKS
     Route: 030
     Dates: start: 20221229
  6. OMEPRAZOLE [Concomitant]
     Active Substance: OMEPRAZOLE
     Dosage: DAILY

REACTIONS (2)
  - Influenza [Unknown]
  - COVID-19 [Unknown]

NARRATIVE: CASE EVENT DATE: 20221201
